FAERS Safety Report 14918101 (Version 1)
Quarter: 2018Q2

REPORT INFORMATION
  Report Type: Spontaneous
  Country: US (occurrence: US)
  Receive Date: 20180502
  Receipt Date: 20180502
  Transmission Date: 20180711
  Serious: Yes (Other)
  Sender: FDA-Public Use
  Company Number: None

PATIENT
  Age: 47 Year
  Sex: Female
  Weight: 85.05 kg

DRUGS (3)
  1. DULOXETINE. [Suspect]
     Active Substance: DULOXETINE
     Indication: NECK PAIN
     Route: 048
     Dates: start: 20150803, end: 20150808
  2. DULOXETINE. [Suspect]
     Active Substance: DULOXETINE
     Indication: NEURALGIA
     Route: 048
     Dates: start: 20150803, end: 20150808
  3. NALTREXONE [Concomitant]
     Active Substance: NALTREXONE

REACTIONS (7)
  - Drug dose omission [None]
  - Crying [None]
  - Confusional state [None]
  - Vomiting [None]
  - Negative thoughts [None]
  - Migraine [None]
  - Ear pain [None]

NARRATIVE: CASE EVENT DATE: 20150808
